FAERS Safety Report 8344536-X (Version None)
Quarter: 2012Q2

REPORT INFORMATION
  Report Type: 
  Country: None (occurrence: None)
  Receive Date: 20120508
  Receipt Date: 20120504
  Transmission Date: 20120825
  Serious: Yes (Other)
  Sender: FDA-Public Use
  Company Number: PHHY2011CA67159

PATIENT
  Sex: Female
  Weight: 50 kg

DRUGS (8)
  1. ZOLEDRONOC ACID [Suspect]
     Dosage: 5 MG/YEAR
     Route: 042
     Dates: start: 20110704
  2. FORTEO [Concomitant]
     Indication: OSTEOPOROSIS
     Dosage: 20 MG, UNK (DAILY)
  3. ZOLEDRONOC ACID [Suspect]
     Indication: OSTEOPOROSIS
     Dosage: 5 MG/YEAR
     Route: 042
     Dates: start: 20090618
  4. VITAMIN D [Concomitant]
     Indication: OSTEOPOROSIS
     Dosage: UNK (400/500) IU, BID
     Dates: start: 20060101
  5. DIDROCAL [Concomitant]
     Indication: OSTEOPOROSIS
     Dosage: 400 MG, UNK (DAILY)
  6. MIACALCIN [Concomitant]
     Indication: OSTEOPOROSIS
     Dosage: 200 IU, UNK (DAILY)
  7. ZOLEDRONOC ACID [Suspect]
     Dosage: 5 MG/YEAR
     Route: 042
     Dates: start: 20100621
  8. EVISTA [Concomitant]
     Indication: OSTEOPOROSIS
     Dosage: 670 MG, UNK (DAILY)

REACTIONS (5)
  - EMPHYSEMA [None]
  - STERNAL FRACTURE [None]
  - RIB FRACTURE [None]
  - LUNG NEOPLASM MALIGNANT [None]
  - FALL [None]
